FAERS Safety Report 14020641 (Version 1)
Quarter: 2017Q3

REPORT INFORMATION
  Report Type: Spontaneous
  Country: US (occurrence: US)
  Receive Date: 20170928
  Receipt Date: 20170928
  Transmission Date: 20171128
  Serious: No
  Sender: FDA-Public Use
  Company Number: US-BAYER-2017-178533

PATIENT
  Age: 20 Year
  Sex: Female

DRUGS (1)
  1. SKYLA [Suspect]
     Active Substance: LEVONORGESTREL
     Indication: CONTRACEPTION
     Dosage: 14 MCG/24HR, CONT
     Route: 015
     Dates: start: 201608

REACTIONS (12)
  - Abdominal pain lower [Not Recovered/Not Resolved]
  - Hyperhidrosis [Recovered/Resolved]
  - Chills [Recovered/Resolved]
  - Chills [Not Recovered/Not Resolved]
  - Dyspareunia [Not Recovered/Not Resolved]
  - Hyperhidrosis [Not Recovered/Not Resolved]
  - Feeling hot [Recovered/Resolved]
  - Abdominal pain lower [Recovered/Resolved]
  - Feeling hot [Not Recovered/Not Resolved]
  - Dyspareunia [Recovered/Resolved]
  - Amenorrhoea [Not Recovered/Not Resolved]
  - Menorrhagia [None]

NARRATIVE: CASE EVENT DATE: 201704
